FAERS Safety Report 10513854 (Version 1)
Quarter: 2014Q4

REPORT INFORMATION
  Report Type: Spontaneous
  Country: FR (occurrence: FR)
  Receive Date: 20141013
  Receipt Date: 20141013
  Transmission Date: 20150528
  Serious: Yes (Hospitalization)
  Sender: FDA-Public Use
  Company Number: FR-SA-2014SA135974

PATIENT
  Age: 61 Year
  Sex: Male

DRUGS (8)
  1. IFOSFAMIDE. [Suspect]
     Active Substance: IFOSFAMIDE
     Indication: LYMPHOMA
     Dosage: DOSE: 5G/M2 ,9800 MG DOSE:5 GRAM(S)/SQUARE METER
     Route: 042
     Dates: start: 20140826, end: 20140827
  2. LYRICA [Suspect]
     Active Substance: PREGABALIN
     Indication: PAIN
     Dosage: DOSE: 25 MGX3
     Route: 048
     Dates: start: 20140825, end: 20140827
  3. LASILIX [Suspect]
     Active Substance: FUROSEMIDE
     Indication: OEDEMA PERIPHERAL
     Route: 048
     Dates: start: 20140810, end: 20140830
  4. CARBOPLATIN. [Suspect]
     Active Substance: CARBOPLATIN
     Indication: LYMPHOMA
     Route: 042
     Dates: start: 20140826, end: 20140826
  5. ZOPHREN [Concomitant]
     Active Substance: ONDANSETRON
  6. SOLU-MEDROL [Concomitant]
     Active Substance: METHYLPREDNISOLONE SODIUM SUCCINATE
  7. ETOPOSIDE. [Suspect]
     Active Substance: ETOPOSIDE
     Indication: LYMPHOMA
     Dosage: DOSE: 196 MG/24H
     Route: 042
     Dates: start: 20140825, end: 20140827
  8. UROMITEXAN [Concomitant]
     Active Substance: MESNA

REACTIONS (1)
  - Encephalopathy [Recovered/Resolved]

NARRATIVE: CASE EVENT DATE: 20140827
